FAERS Safety Report 9915173 (Version 2)
Quarter: 2014Q1

REPORT INFORMATION
  Report Type: Spontaneous
  Country: BR (occurrence: BR)
  Receive Date: 20140220
  Receipt Date: 20140305
  Transmission Date: 20141002
  Serious: Yes (Hospitalization)
  Sender: FDA-Public Use
  Company Number: BR-ASTRAZENECA-2014SE11242

PATIENT
  Age: 54 Year
  Sex: Male
  Weight: 92 kg

DRUGS (3)
  1. CRESTOR [Suspect]
     Indication: BLOOD CHOLESTEROL INCREASED
     Route: 048
     Dates: start: 201210, end: 201402
  2. SELOZOK [Suspect]
     Indication: HYPERTENSION
     Route: 048
     Dates: start: 201210
  3. ASA [Concomitant]
     Indication: CORONARY ARTERY OCCLUSION
     Dosage: DAILY
     Route: 048
     Dates: start: 201210

REACTIONS (1)
  - Coronary artery occlusion [Recovered/Resolved]
